FAERS Safety Report 9485661 (Version 2)
Quarter: 2013Q3

REPORT INFORMATION
  Report Type: Spontaneous
  Country: CH (occurrence: None)
  Receive Date: 20130822
  Receipt Date: 20130904
  Transmission Date: 20140515
  Serious: Yes (Hospitalization)
  Sender: FDA-Public Use
  Company Number: DSM-2013-00766

PATIENT
  Age: 79 Year
  Sex: Female
  Weight: 53 kg

DRUGS (8)
  1. VASCORD HCT (TABLET) [Suspect]
     Indication: HYPERTENSION
     Dosage: 40/10/12.5MG (1 IN 1 D) ORAL
     Route: 048
     Dates: start: 20130409
  2. CARDIOASPIRIN (ACETYLSALICYLIC ACID) (ACETYLSALICYLIC ACID) [Concomitant]
  3. NEOMERCAZOLE (CARBIMAZOLE) (CARBIMAZOLE) [Concomitant]
  4. BILOL (BISOPROLOL FUMARATE)  (BISOPROLOL FUMARATE) [Concomitant]
  5. PRAVASTATIN (PRAVASTATIN) (PRAVASTATIN) [Concomitant]
  6. BRILIQUE [Concomitant]
  7. TORASEMID (TORASEMIDE) (TORASEMIDE) [Concomitant]
  8. ATACAND (CANDESARTAN CILEXETIL) (TABLET) (CANDESARTAN CILEXETIL) [Concomitant]

REACTIONS (6)
  - Coronary artery stenosis [None]
  - Angina unstable [None]
  - Intracranial aneurysm [None]
  - Cerebral microangiopathy [None]
  - Cerebellar infarction [None]
  - Carotid artery aneurysm [None]
